FAERS Safety Report 6659790-X (Version None)
Quarter: 2010Q1

REPORT INFORMATION
  Report Type: 
  Country: None (occurrence: None)
  Receive Date: 20100325
  Receipt Date: 20100312
  Transmission Date: 20100710
  Serious: Yes (Hospitalization, Other)
  Sender: FDA-Public Use
  Company Number: 230311J09GBR

PATIENT
  Sex: Male

DRUGS (1)
  1. REBIF [Suspect]
     Indication: OFF LABEL USE
     Dosage: 8.8 MCG
     Dates: start: 20081103, end: 20100301

REACTIONS (5)
  - DEPRESSION [None]
  - EATING DISORDER [None]
  - FACIAL PALSY [None]
  - MULTIPLE SCLEROSIS RELAPSE [None]
  - OFF LABEL USE [None]
